FAERS Safety Report 11143861 (Version 4)
Quarter: 2016Q3

REPORT INFORMATION
  Report Type: Report from Study
  Country: JP (occurrence: JP)
  Receive Date: 20150526
  Receipt Date: 20160728
  Transmission Date: 20161109
  Serious: Yes (Hospitalization, Other)
  Sender: FDA-Public Use
  Company Number: JP-SHIRE-JP201503333

PATIENT
  Age: 67 Year
  Sex: Male
  Weight: 61.2 kg

DRUGS (15)
  1. NESINA [Concomitant]
     Active Substance: ALOGLIPTIN BENZOATE
     Indication: DIABETES MELLITUS
     Dosage: UNK, UNKNOWN
     Route: 065
     Dates: start: 1990
  2. 422 (ANAGRELIDE) [Suspect]
     Active Substance: ANAGRELIDE
     Indication: ESSENTIAL THROMBOCYTHAEMIA
     Dosage: 2 MG/DAY
     Route: 048
     Dates: start: 20150319, end: 20150401
  3. HYDREA [Concomitant]
     Active Substance: HYDROXYUREA
     Indication: ESSENTIAL THROMBOCYTHAEMIA
     Dosage: 1000 MG/DAY
     Route: 048
     Dates: start: 2008, end: 20150107
  4. HYDREA [Concomitant]
     Active Substance: HYDROXYUREA
     Dosage: 500 MG/DAY
     Route: 048
     Dates: start: 20150826, end: 20150901
  5. 422 (ANAGRELIDE) [Suspect]
     Active Substance: ANAGRELIDE
     Dosage: 1.5 MG/DAY
     Route: 048
     Dates: start: 20150526, end: 20150825
  6. 422 (ANAGRELIDE) [Suspect]
     Active Substance: ANAGRELIDE
     Dosage: 0.5 MG/DAY
     Route: 048
     Dates: start: 20150826, end: 20151006
  7. BUFFERIN [Concomitant]
     Active Substance: ASPIRIN
     Indication: PROPHYLAXIS
     Dosage: UNK, UNKNOWN
     Route: 048
  8. AMARYL [Concomitant]
     Active Substance: GLIMEPIRIDE
     Indication: DIABETES MELLITUS
     Dosage: UNK, UNKNOWN
     Route: 065
     Dates: start: 1990
  9. 422 (ANAGRELIDE) [Suspect]
     Active Substance: ANAGRELIDE
     Dosage: 1 MG/DAY
     Route: 048
     Dates: start: 20150108, end: 20150218
  10. HYDREA [Concomitant]
     Active Substance: HYDROXYUREA
     Dosage: 500 MG/DAY
     Route: 048
     Dates: start: 20150108, end: 20150121
  11. HYDREA [Concomitant]
     Active Substance: HYDROXYUREA
     Dosage: 1000 MG/DAY
     Route: 048
     Dates: start: 20150414, end: 20150825
  12. HYDREA [Concomitant]
     Active Substance: HYDROXYUREA
     Dosage: 1000 MG/DAY
     Route: 048
     Dates: start: 20150902
  13. 422 (ANAGRELIDE) [Suspect]
     Active Substance: ANAGRELIDE
     Dosage: 1 MG/DAY
     Route: 048
     Dates: start: 20150424, end: 20150525
  14. 422 (ANAGRELIDE) [Suspect]
     Active Substance: ANAGRELIDE
     Dosage: 1.5 MG/DAY
     Route: 048
     Dates: start: 20150219, end: 20150318
  15. GLUCOBAY [Concomitant]
     Active Substance: ACARBOSE
     Indication: DIABETES MELLITUS
     Dosage: UNK, UNKNOWN
     Route: 065
     Dates: start: 1990

REACTIONS (3)
  - Palpitations [Recovered/Resolved]
  - Pancreatic enzymes increased [Recovered/Resolved]
  - Pneumonia [Recovered/Resolved]

NARRATIVE: CASE EVENT DATE: 20150401
